FAERS Safety Report 13631412 (Version 1)
Quarter: 2017Q2

REPORT INFORMATION
  Report Type: Spontaneous
  Country: US (occurrence: US)
  Receive Date: 20170531
  Receipt Date: 20170531
  Transmission Date: 20170830
  Serious: No
  Sender: FDA-Public Use
  Company Number: US-ASTELLAS-1381345

PATIENT
  Sex: Male

DRUGS (8)
  1. REFRESH OPTIVE [Concomitant]
     Active Substance: CARBOXYMETHYLCELLULOSE SODIUM\GLYCERIN
  2. TARCEVA [Suspect]
     Active Substance: ERLOTINIB HYDROCHLORIDE
     Indication: LUNG NEOPLASM MALIGNANT
     Dosage: DAILY
     Route: 048
     Dates: start: 20140120
  3. FEXOFENADINE HCL [Concomitant]
     Active Substance: FEXOFENADINE HYDROCHLORIDE
  4. AVAR [Concomitant]
     Active Substance: SULFACETAMIDE SODIUM\SULFUR
  5. DEXAMETHASONE. [Concomitant]
     Active Substance: DEXAMETHASONE
  6. DULCOLAX STOOL SOFTENER [Concomitant]
     Active Substance: DOCUSATE SODIUM
  7. DULCOLAX STOOL SOFTENER [Concomitant]
     Active Substance: DOCUSATE SODIUM
  8. FIBER [Concomitant]
     Active Substance: PSYLLIUM HUSK

REACTIONS (6)
  - Pruritus [Unknown]
  - Eye irritation [Unknown]
  - Diarrhoea [Unknown]
  - Dry eye [Unknown]
  - Gastrooesophageal reflux disease [Unknown]
  - Dyspepsia [Unknown]
